FAERS Safety Report 19012071 (Version 1)
Quarter: 2021Q1

REPORT INFORMATION
  Report Type: Report from Study
  Country: US (occurrence: US)
  Receive Date: 20210316
  Receipt Date: 20210316
  Transmission Date: 20210420
  Serious: Yes (Hospitalization)
  Sender: FDA-Public Use
  Company Number: US-BAYER-2021-103680

PATIENT
  Age: 67 Year
  Sex: Female

DRUGS (3)
  1. BAYER LOW DOSE [Suspect]
     Active Substance: ASPIRIN
     Dosage: 81 MG, QD
  2. WARFARIN [Suspect]
     Active Substance: WARFARIN
     Dosage: UNK
  3. RIVAROXABAN [Interacting]
     Active Substance: RIVAROXABAN
     Indication: HAEMORRHAGE
     Dosage: 20 MG, QD

REACTIONS (2)
  - Labelled drug-drug interaction medication error [None]
  - Retroperitoneal haemorrhage [None]
